FAERS Safety Report 9030562 (Version 5)
Quarter: 2015Q3

REPORT INFORMATION
  Report Type: Spontaneous
  Country: US (occurrence: US)
  Receive Date: 20130122
  Receipt Date: 20150728
  Transmission Date: 20151125
  Serious: Yes (Hospitalization, Other)
  Sender: FDA-Public Use
  Company Number: US-009507513-1301USA009732

PATIENT
  Sex: Female
  Weight: 75.74 kg

DRUGS (5)
  1. FOSAMAX [Suspect]
     Active Substance: ALENDRONATE SODIUM
     Indication: OSTEOPENIA
  2. BONIVA [Suspect]
     Active Substance: IBANDRONATE SODIUM
     Indication: OSTEOPOROSIS
     Dosage: 150 MG, QM
     Route: 048
     Dates: start: 20070712, end: 20110315
  3. FOSAMAX [Suspect]
     Active Substance: ALENDRONATE SODIUM
     Indication: OSTEOPOROSIS
     Dosage: 70 MG, QW
     Route: 048
     Dates: start: 20070430, end: 20070712
  4. SYNTHROID [Concomitant]
     Active Substance: LEVOTHYROXINE SODIUM
     Indication: HYPOTHYROIDISM
     Dosage: UNK
     Route: 048
     Dates: start: 2007, end: 2012
  5. BONIVA [Suspect]
     Active Substance: IBANDRONATE SODIUM
     Indication: OSTEOPENIA

REACTIONS (26)
  - Depression [Not Recovered/Not Resolved]
  - Vitamin D deficiency [Unknown]
  - Throat tightness [Unknown]
  - Mania [Not Recovered/Not Resolved]
  - Hypertension [Not Recovered/Not Resolved]
  - Osteoarthritis [Not Recovered/Not Resolved]
  - Goitre [Unknown]
  - Flushing [Unknown]
  - Fall [Unknown]
  - Asthma [Unknown]
  - Anxiety [Unknown]
  - Pain [Unknown]
  - Anaemia postoperative [Unknown]
  - Lymphoedema [Not Recovered/Not Resolved]
  - Intramedullary rod insertion [Unknown]
  - Low turnover osteopathy [Unknown]
  - Joint dislocation [Unknown]
  - Rosacea [Unknown]
  - Femur fracture [Unknown]
  - Onychomycosis [Unknown]
  - Hyperlipidaemia [Unknown]
  - Abdominal discomfort [Unknown]
  - Anxiety [Not Recovered/Not Resolved]
  - Osteoarthritis [Unknown]
  - Cardiac murmur [Unknown]
  - Bursitis [Unknown]

NARRATIVE: CASE EVENT DATE: 2008
